FAERS Safety Report 9999511 (Version 1)
Quarter: 2014Q1

REPORT INFORMATION
  Report Type: Spontaneous
  Country: US (occurrence: US)
  Receive Date: 20140312
  Receipt Date: 20140312
  Transmission Date: 20141002
  Serious: No
  Sender: FDA-Public Use
  Company Number: US-TEVA-433649USA

PATIENT
  Sex: Female

DRUGS (1)
  1. AMOXICILLIN [Suspect]
     Dates: start: 20130916

REACTIONS (4)
  - Oral pain [Unknown]
  - Gingival pain [Unknown]
  - Product odour abnormal [Unknown]
  - Product taste abnormal [Unknown]
